FAERS Safety Report 25828430 (Version 1)
Quarter: 2025Q3

REPORT INFORMATION
  Report Type: Spontaneous
  Country: US (occurrence: US)
  Receive Date: 20250921
  Receipt Date: 20250921
  Transmission Date: 20251021
  Serious: Yes (Other)
  Sender: BRISTOL-MYERS SQUIBB COMPANY
  Company Number: US-BRISTOL-MYERS SQUIBB COMPANY-2025-129200

PATIENT
  Age: 55 Year
  Sex: Female

DRUGS (1)
  1. REVLIMID [Suspect]
     Active Substance: LENALIDOMIDE
     Indication: Dermatitis atopic
     Dosage: TAKE 1 CAPSULE BY MOUTH EVERY DAY FOR THE FIRST 21 DAYS OF EACH 28 DAY CYCLE. DON^T BREAK, CHEW, OR OPEN CAPS.

REACTIONS (1)
  - Disease progression [Unknown]
